FAERS Safety Report 5449743-1 (Version None)
Quarter: 2007Q3

REPORT INFORMATION
  Report Type: 
  Country: None (occurrence: None)
  Receive Date: 20070907
  Receipt Date: 20070907
  Transmission Date: 20080115
  Serious: Yes (Death, Hospitalization)
  Sender: FDA-Public Use
  Company Number: None

PATIENT
  Age: 57 Year
  Sex: Female
  Weight: 58.0604 kg

DRUGS (3)
  1. ADRIAMYCIN PFS [Suspect]
     Indication: BREAST CANCER
     Dosage: IV  (EVERY 3 WEEKS)
     Route: 042
     Dates: start: 20070821, end: 20070821
  2. CYTOXAN [Suspect]
     Dosage: IV  (EVERY 3 WEEKS)
     Route: 042
     Dates: start: 20070821, end: 20070821
  3. TAXOTERE [Suspect]
     Dosage: IV DRIP   (EVERY 3 WEEKS)
     Route: 041
     Dates: start: 20070821, end: 20070821

REACTIONS (3)
  - COLITIS ISCHAEMIC [None]
  - PLATELET COUNT DECREASED [None]
  - SEPSIS [None]
